FAERS Safety Report 20773773 (Version 2)
Quarter: 2022Q3

REPORT INFORMATION
  Report Type: Other
  Country: KR (occurrence: None)
  Receive Date: 20220502
  Receipt Date: 20220714
  Transmission Date: 20221026
  Serious: Yes (Hospitalization, Other)
  Sender: FDA-Public Use
  Company Number: KR-ROCHE-3078344

PATIENT
  Age: 69 Year
  Sex: Male
  Weight: 62.7 kg

DRUGS (27)
  1. ATEZOLIZUMAB [Suspect]
     Active Substance: ATEZOLIZUMAB
     Indication: Small cell lung cancer extensive stage
     Route: 041
     Dates: start: 20211115
  2. ATEZOLIZUMAB [Suspect]
     Active Substance: ATEZOLIZUMAB
     Route: 042
     Dates: start: 20211213
  3. ATEZOLIZUMAB [Suspect]
     Active Substance: ATEZOLIZUMAB
     Route: 042
     Dates: start: 20220114
  4. CARBOPLATIN [Suspect]
     Active Substance: CARBOPLATIN
     Indication: Small cell lung cancer extensive stage
     Route: 042
     Dates: start: 20211115
  5. CARBOPLATIN [Suspect]
     Active Substance: CARBOPLATIN
     Route: 042
     Dates: start: 20211213
  6. CARBOPLATIN [Suspect]
     Active Substance: CARBOPLATIN
     Route: 042
     Dates: start: 20220114
  7. ETOPOSIDE [Suspect]
     Active Substance: ETOPOSIDE
     Indication: Small cell lung cancer extensive stage
     Route: 042
     Dates: start: 20211115
  8. ETOPOSIDE [Suspect]
     Active Substance: ETOPOSIDE
     Route: 042
     Dates: start: 20211116
  9. ETOPOSIDE [Suspect]
     Active Substance: ETOPOSIDE
     Route: 042
     Dates: start: 20211117
  10. ETOPOSIDE [Suspect]
     Active Substance: ETOPOSIDE
     Route: 042
     Dates: start: 20211213
  11. ETOPOSIDE [Suspect]
     Active Substance: ETOPOSIDE
     Route: 042
     Dates: start: 20211214
  12. ETOPOSIDE [Suspect]
     Active Substance: ETOPOSIDE
     Route: 042
     Dates: start: 20211215
  13. ETOPOSIDE [Suspect]
     Active Substance: ETOPOSIDE
     Route: 042
     Dates: start: 20220114
  14. ETOPOSIDE [Suspect]
     Active Substance: ETOPOSIDE
     Route: 042
     Dates: start: 20220115
  15. ETOPOSIDE [Suspect]
     Active Substance: ETOPOSIDE
     Route: 042
     Dates: start: 20220116
  16. FEBUXOSTAT [Concomitant]
     Active Substance: FEBUXOSTAT
     Indication: Congenital cystic kidney disease
     Dates: start: 20201028
  17. FEBUXOSTAT [Concomitant]
     Active Substance: FEBUXOSTAT
     Indication: Chronic kidney disease
  18. DEXAMETHASONE [Concomitant]
     Active Substance: DEXAMETHASONE
     Indication: Congenital cystic kidney disease
     Dosage: 5 MG/ML
     Dates: start: 20211115
  19. DEXAMETHASONE [Concomitant]
     Active Substance: DEXAMETHASONE
     Indication: Chronic kidney disease
  20. RABE [Concomitant]
     Indication: Chronic gastritis
     Dates: start: 20211223
  21. NEXILEN S [Concomitant]
     Indication: Chronic gastritis
     Dates: start: 20211122
  22. FEROBA YOU SR [Concomitant]
     Indication: Anaemia
     Dates: start: 20211223
  23. TARGIN PR [Concomitant]
     Indication: Lung neoplasm malignant
     Dosage: STRENGTH: 5/2.5 MG
     Dates: start: 20211223
  24. DUOLAX TABLETS [Concomitant]
     Indication: Constipation
     Dates: start: 20211122
  25. DIFLUCAN [Concomitant]
     Active Substance: FLUCONAZOLE
     Indication: Oral candidiasis
     Dates: start: 20211124
  26. MAXIPIME [Concomitant]
     Active Substance: CEFEPIME HYDROCHLORIDE
     Indication: Bronchitis chronic
     Dates: start: 20211126
  27. LANSOPRAZOLE [Concomitant]
     Active Substance: LANSOPRAZOLE
     Indication: Chronic gastritis
     Dates: start: 20211108

REACTIONS (6)
  - Infarction [Recovering/Resolving]
  - Arthralgia [Recovering/Resolving]
  - Colitis [Recovering/Resolving]
  - Leukocytosis [Recovering/Resolving]
  - Sialoadenitis [Recovering/Resolving]
  - Febrile neutropenia [Recovering/Resolving]

NARRATIVE: CASE EVENT DATE: 20220123
